FAERS Safety Report 9239100 (Version 4)
Quarter: 2013Q3

REPORT INFORMATION
  Report Type: Report from Study
  Country: JP (occurrence: JP)
  Receive Date: 20130418
  Receipt Date: 20130710
  Transmission Date: 20140515
  Serious: Yes (Hospitalization)
  Sender: FDA-Public Use
  Company Number: JP-ABBOTT-13P-087-1076284-00

PATIENT
  Age: 68 Year
  Sex: Female
  Weight: 65 kg

DRUGS (14)
  1. HUMIRA [Suspect]
     Indication: RHEUMATOID ARTHRITIS
     Route: 058
     Dates: start: 20121030, end: 20130205
  2. HUMIRA [Suspect]
     Route: 058
     Dates: start: 20130410
  3. CELECOXIB [Concomitant]
     Indication: RHEUMATOID ARTHRITIS
     Dates: start: 20090414, end: 20110222
  4. METHOTREXATE [Concomitant]
     Indication: RHEUMATOID ARTHRITIS
     Dates: start: 20090411, end: 20090511
  5. METHOTREXATE [Concomitant]
     Dates: start: 20090512, end: 20090914
  6. METHOTREXATE [Concomitant]
     Dates: start: 20090915, end: 20100201
  7. METHOTREXATE [Concomitant]
     Dates: start: 20100202, end: 20100329
  8. METHOTREXATE [Concomitant]
     Dates: start: 20100330, end: 20110221
  9. METHOTREXATE [Concomitant]
     Dates: start: 20110222, end: 20130211
  10. METHOTREXATE [Concomitant]
     Dates: start: 20130327
  11. PREDNISOLONE [Concomitant]
     Indication: RHEUMATOID ARTHRITIS
     Route: 048
     Dates: start: 20100105, end: 20130211
  12. FOLIC ACID [Concomitant]
     Indication: RHEUMATOID ARTHRITIS
     Route: 048
     Dates: start: 20090825, end: 20130211
  13. LOXOPROFEN SODIUM [Concomitant]
     Indication: RHEUMATOID ARTHRITIS
     Route: 048
     Dates: start: 20110222, end: 20130211
  14. TACROLIMUS HYDRATE [Concomitant]
     Indication: RHEUMATOID ARTHRITIS
     Route: 048
     Dates: start: 20100525, end: 20130211

REACTIONS (1)
  - Cerebral infarction [Recovered/Resolved with Sequelae]
